FAERS Safety Report 9336292 (Version 1)
Quarter: 2013Q2

REPORT INFORMATION
  Report Type: Spontaneous
  Country: DE (occurrence: DE)
  Receive Date: 20130607
  Receipt Date: 20130607
  Transmission Date: 20140414
  Serious: Yes (Other)
  Sender: FDA-Public Use
  Company Number: DE-AMGEN-DEUSP2012081819

PATIENT
  Age: 59 Year
  Sex: Female
  Weight: 56 kg

DRUGS (4)
  1. PROLIA [Suspect]
     Indication: OSTEOPOROSIS
     Dosage: 60 MG, UNK
     Route: 058
     Dates: start: 201203, end: 201210
  2. CALCIUM [Concomitant]
     Indication: OSTEOPOROSIS
     Dosage: 500 UNK, QD
     Route: 048
     Dates: start: 201203
  3. DEKRISTOL [Concomitant]
     Indication: OSTEOPOROSIS
     Dosage: 20000 UNK, UNK
     Route: 048
     Dates: start: 201203
  4. VITAMIN B12                        /00056201/ [Concomitant]
     Dosage: 1 MG, UNK
     Route: 048
     Dates: start: 201209

REACTIONS (1)
  - Oesophageal achalasia [Unknown]
